FAERS Safety Report 6313718-0 (Version None)
Quarter: 2009Q3

REPORT INFORMATION
  Report Type: 
  Country: None (occurrence: None)
  Receive Date: 20090818
  Receipt Date: 20010402
  Transmission Date: 20100115
  Serious: No
  Sender: FDA-Public Use
  Company Number: 2001SUS0310

PATIENT
  Age: 24 Year
  Sex: Female

DRUGS (6)
  1. SUSTIVA [Suspect]
     Indication: HIV INFECTION
     Dosage: 600 MG AES#DOSE_FREQUENCY: DLY
     Route: 048
     Dates: start: 20000309, end: 20000601
  2. STAVUDINE [Suspect]
     Indication: HIV INFECTION
     Dosage: 60 MG AES#DOSE_FREQUENCY: DLY
     Route: 048
     Dates: start: 19990423, end: 20000301
  3. ABACAVIR SULFATE [Suspect]
     Indication: HIV INFECTION
     Dosage: 600 MG AES#DOSE_FREQUENCY: DLY
     Route: 048
     Dates: start: 19990423, end: 20000301
  4. LAMIVUDINE + ZIDOVUDINE [Suspect]
     Indication: HIV INFECTION
     Dosage: 2 DLY
     Route: 048
     Dates: start: 20000309
  5. NELFINAVIR [Suspect]
     Indication: HIV INFECTION
     Dosage: 1000-2500 MG DLY
     Route: 048
     Dates: start: 19990423
  6. SAQUINAVIR [Suspect]
     Indication: HIV INFECTION
     Dosage: 2400 MG AES#DOSE_FREQUENCY: DLY
     Route: 048
     Dates: start: 20000309, end: 20001101

REACTIONS (2)
  - NORMAL NEWBORN [None]
  - PREGNANCY [None]
